FAERS Safety Report 21546003 (Version 4)
Quarter: 2023Q1

REPORT INFORMATION
  Report Type: Report from Study
  Country: US (occurrence: US)
  Receive Date: 20221103
  Receipt Date: 20230207
  Transmission Date: 20230417
  Serious: Yes (Life-Threatening, Other)
  Sender: FDA-Public Use
  Company Number: US-002147023-NVSC2022US247604

PATIENT
  Sex: Male

DRUGS (1)
  1. COSENTYX [Suspect]
     Active Substance: SECUKINUMAB
     Indication: Psoriatic arthropathy
     Dosage: 300 MG, QMO
     Route: 058
     Dates: start: 202208

REACTIONS (7)
  - Hypersensitivity [Unknown]
  - Chest pain [Unknown]
  - Dyspnoea [Unknown]
  - Lip swelling [Unknown]
  - Rash [Unknown]
  - Urticaria [Unknown]
  - Pain in extremity [Unknown]
